FAERS Safety Report 5370859-2 (Version None)
Quarter: 2007Q2

REPORT INFORMATION
  Report Type: 
  Country: None (occurrence: None)
  Receive Date: 20070626
  Receipt Date: 20070626
  Transmission Date: 20071010
  Serious: Yes (Other)
  Sender: FDA-Public Use
  Company Number: A0659822A

PATIENT
  Age: 32 Year
  Sex: Female

DRUGS (1)
  1. ALLI [Suspect]
     Route: 048
     Dates: start: 20070622, end: 20070624

REACTIONS (1)
  - RECTAL HAEMORRHAGE [None]
